FAERS Safety Report 11849397 (Version 2)
Quarter: 2016Q1

REPORT INFORMATION
  Report Type: Spontaneous
  Country: US (occurrence: US)
  Receive Date: 20151218
  Receipt Date: 20160113
  Transmission Date: 20160526
  Serious: Yes (Other)
  Sender: FDA-Public Use
  Company Number: US-BAYER-2015-491440

PATIENT
  Age: 25 Year
  Sex: Female

DRUGS (1)
  1. SKYLA [Suspect]
     Active Substance: LEVONORGESTREL
     Indication: CONTRACEPTION
     Dosage: 14 MCG/24HR, CONT
     Dates: start: 20150128, end: 20151215

REACTIONS (7)
  - Menstruation delayed [Not Recovered/Not Resolved]
  - Post procedural haemorrhage [None]
  - Medical device discomfort [None]
  - Ectopic pregnancy with contraceptive device [Not Recovered/Not Resolved]
  - Dyspareunia [None]
  - Device dislocation [None]
  - Drug ineffective [None]

NARRATIVE: CASE EVENT DATE: 2015
